FAERS Safety Report 10776970 (Version 4)
Quarter: 2015Q3

REPORT INFORMATION
  Report Type: Spontaneous
  Country: US (occurrence: US)
  Receive Date: 20150209
  Receipt Date: 20150821
  Transmission Date: 20151125
  Serious: Yes (Hospitalization, Other)
  Sender: FDA-Public Use
  Company Number: US-BAYER-2015-017770

PATIENT
  Age: 31 Year
  Sex: Female
  Weight: 99.77 kg

DRUGS (12)
  1. MIRENA [Suspect]
     Active Substance: LEVONORGESTREL
     Indication: CONTRACEPTION
     Dosage: 20 MCG/24HR, CONT
     Route: 015
     Dates: start: 2003, end: 2008
  2. ANTIPYRINE W/BENZOCAINE [Concomitant]
     Indication: SINUSITIS
     Dosage: 5 DROPS BOTH EARS 4 TIMES A DAY
  3. ANTIPYRINE W/BENZOCAINE [Concomitant]
     Indication: EAR PAIN
  4. ZOSYN [Concomitant]
     Active Substance: PIPERACILLIN SODIUM\TAZOBACTAM SODIUM
  5. FLONASE [Concomitant]
     Active Substance: FLUTICASONE PROPIONATE
     Indication: SINUSITIS
     Dosage: 2 SPRAYS DAILY
     Route: 045
  6. FLONASE [Concomitant]
     Active Substance: FLUTICASONE PROPIONATE
     Indication: EAR PAIN
  7. AMOXICILLIN. [Concomitant]
     Active Substance: AMOXICILLIN
     Indication: EAR PAIN
  8. MIRENA [Suspect]
     Active Substance: LEVONORGESTREL
     Indication: CONTRACEPTION
     Dosage: 20 MCG/24HR, CONT
     Route: 015
     Dates: start: 20100827, end: 20121029
  9. UNASYN [Concomitant]
     Active Substance: AMPICILLIN SODIUM\SULBACTAM SODIUM
  10. AMOXICILLIN. [Concomitant]
     Active Substance: AMOXICILLIN
     Indication: SINUSITIS
     Dosage: 500 MG, TID
     Route: 048
  11. GLYBURIDE. [Concomitant]
     Active Substance: GLYBURIDE
     Dosage: 5 MG, UNK
  12. PARAGARD T 380A [Suspect]
     Active Substance: COPPER
     Dosage: UNK
     Dates: end: 20121029

REACTIONS (12)
  - Pyrexia [None]
  - Gestational diabetes [None]
  - Injury [None]
  - Pain [None]
  - Drug diversion [None]
  - Drug ineffective [None]
  - Abdominal pain lower [None]
  - Infection [None]
  - Caesarean section [None]
  - Uterine perforation [None]
  - Pregnancy with contraceptive device [None]
  - Off label use of device [None]

NARRATIVE: CASE EVENT DATE: 2012
